FAERS Safety Report 21967103 (Version 1)
Quarter: 2023Q1

REPORT INFORMATION
  Report Type: Spontaneous
  Country: US (occurrence: None)
  Receive Date: 20230206
  Receipt Date: 20230206
  Transmission Date: 20230418
  Serious: Yes (Other)
  Sender: FDA-Public Use
  Company Number: None

PATIENT
  Age: 33 Year
  Sex: Male
  Weight: 112.95 kg

DRUGS (1)
  1. LIDOCAINE PATCH [Suspect]
     Active Substance: LIDOCAINE
     Indication: Pain
     Dosage: FREQUENCY : DAILY;?
     Route: 061
     Dates: start: 20220304, end: 20221205

REACTIONS (2)
  - Application site pruritus [None]
  - Skin disorder [None]

NARRATIVE: CASE EVENT DATE: 20221205
